FAERS Safety Report 12841515 (Version 2)
Quarter: 2016Q4

REPORT INFORMATION
  Report Type: Spontaneous
  Country: US (occurrence: US)
  Receive Date: 20161012
  Receipt Date: 20161026
  Transmission Date: 20170207
  Serious: Yes (Other)
  Sender: FDA-Public Use
  Company Number: US-ACORDA-ACO_128723_2016

PATIENT
  Sex: Female

DRUGS (3)
  1. GILENYA [Suspect]
     Active Substance: FINGOLIMOD HYDROCHLORIDE
     Indication: PRODUCT USED FOR UNKNOWN INDICATION
     Dosage: UNK
     Route: 065
  2. TECFIDERA [Concomitant]
     Active Substance: DIMETHYL FUMARATE
     Indication: PRODUCT USED FOR UNKNOWN INDICATION
     Dosage: UNK
     Route: 065
  3. AMPYRA [Suspect]
     Active Substance: DALFAMPRIDINE
     Indication: PRODUCT USED FOR UNKNOWN INDICATION
     Dosage: UNK
     Route: 065
     Dates: start: 201606

REACTIONS (14)
  - Somnolence [Unknown]
  - Malaise [Unknown]
  - Blindness unilateral [Unknown]
  - Hypertension [Unknown]
  - Vision blurred [Unknown]
  - Arthropathy [None]
  - Blood urine present [Unknown]
  - Flushing [Unknown]
  - Gait disturbance [Unknown]
  - Hyperhidrosis [Unknown]
  - Depression [Unknown]
  - Limb discomfort [Unknown]
  - Radial nerve palsy [Unknown]
  - Peroneal nerve palsy [Unknown]
